FAERS Safety Report 6596013-4 (Version None)
Quarter: 2010Q1

REPORT INFORMATION
  Report Type: 
  Country: None (occurrence: None)
  Receive Date: 20100223
  Receipt Date: 20100212
  Transmission Date: 20100710
  Serious: Yes (Other)
  Sender: FDA-Public Use
  Company Number: US-WYE-H12684609

PATIENT

DRUGS (1)
  1. EFFEXOR [Suspect]
     Dosage: UNSPECIFIED
     Dates: start: 20030101

REACTIONS (1)
  - PARKINSON'S DISEASE [None]
